FAERS Safety Report 5338993-0 (Version None)
Quarter: 2007Q2

REPORT INFORMATION
  Report Type: 
  Country: None (occurrence: None)
  Receive Date: 20070403
  Receipt Date: 20060206
  Transmission Date: 20071010
  Serious: Yes (Other)
  Sender: FDA-Public Use
  Company Number: 2006018978

PATIENT

DRUGS (2)
  1. HEPARIN SODIUM [Suspect]
     Indication: ILL-DEFINED DISORDER
  2. INTEGRILIN [Suspect]
     Indication: ILL-DEFINED DISORDER

REACTIONS (1)
  - PULMONARY HAEMORRHAGE [None]
